FAERS Safety Report 8204210-7 (Version None)
Quarter: 2012Q1

REPORT INFORMATION
  Report Type: 
  Country: None (occurrence: None)
  Receive Date: 20120313
  Receipt Date: 20120302
  Transmission Date: 20120608
  Serious: Yes (Hospitalization, Other)
  Sender: FDA-Public Use
  Company Number: US-NOVOPROD-346279

PATIENT
  Age: 47 Year
  Sex: Male
  Weight: 167.8 kg

DRUGS (3)
  1. NOVOLOG [Suspect]
     Indication: TYPE 2 DIABETES MELLITUS
     Dosage: 28 U, QD
     Route: 058
  2. LANTUS [Concomitant]
     Indication: TYPE 2 DIABETES MELLITUS
     Dosage: 68 U, QD
     Route: 058
  3. PERCOCET [Concomitant]
     Indication: NEUROPATHY PERIPHERAL
     Dosage: UNKNOWN
     Route: 048

REACTIONS (4)
  - BLOOD GLUCOSE INCREASED [None]
  - EYELID PTOSIS [None]
  - HYPOAESTHESIA [None]
  - COLD SWEAT [None]
